FAERS Safety Report 10210075 (Version 2)
Quarter: 2014Q2

REPORT INFORMATION
  Report Type: Spontaneous
  Country: FR (occurrence: FR)
  Receive Date: 20140602
  Receipt Date: 20140610
  Transmission Date: 20141212
  Serious: Yes (Death, Other)
  Sender: FDA-Public Use
  Company Number: FR-ROCHE-1411912

PATIENT
  Age: 69 Year
  Sex: Female

DRUGS (3)
  1. LUCENTIS [Suspect]
     Indication: GLAUCOMA
     Route: 050
     Dates: start: 200909
  2. LUCENTIS [Suspect]
     Indication: IRIS NEOVASCULARISATION
  3. PROTON [Concomitant]
     Indication: MALIGNANT MELANOMA
     Route: 065
     Dates: start: 20090529

REACTIONS (2)
  - Metastases to liver [Fatal]
  - Off label use [Unknown]
